FAERS Safety Report 20513562 (Version 3)
Quarter: 2022Q2

REPORT INFORMATION
  Report Type: Spontaneous
  Country: CA (occurrence: CA)
  Receive Date: 20220224
  Receipt Date: 20220404
  Transmission Date: 20220720
  Serious: Yes (Death)
  Sender: FDA-Public Use
  Company Number: CA-PFIZER INC-202200315422

PATIENT
  Age: 71 Year
  Sex: Female

DRUGS (2)
  1. ZIRABEV [Suspect]
     Active Substance: BEVACIZUMAB-BVZR
     Dosage: 15MG/KG (750MG) EVERY 3 WEEKS
     Route: 042
     Dates: start: 20210204
  2. ZIRABEV [Suspect]
     Active Substance: BEVACIZUMAB-BVZR
     Dosage: 15MG/KG (750MG) EVERY 3 WEEKS
     Route: 042
     Dates: start: 20210729, end: 20210729

REACTIONS (1)
  - Death [Fatal]
